FAERS Safety Report 15138425 (Version 1)
Quarter: 2018Q3

REPORT INFORMATION
  Report Type: Spontaneous
  Country: DE (occurrence: DE)
  Receive Date: 20180713
  Receipt Date: 20180713
  Transmission Date: 20181010
  Serious: Yes (Congenital Anomaly)
  Sender: FDA-Public Use
  Company Number: DE-TEVA-2018-DE-923950

PATIENT
  Age: 0 Year
  Sex: Male
  Weight: 3.01 kg

DRUGS (6)
  1. PROGESTERON [Concomitant]
     Active Substance: PROGESTERONE
     Indication: PROPHYLAXIS OF ABORTION
     Dosage: 200 MILLIGRAM DAILY; 200 [MG/D ]
     Route: 064
  2. CITALOPRAM HEXAL 20 MG FILMTABLETTEN [Suspect]
     Active Substance: CITALOPRAM HYDROBROMIDE
     Indication: DEPRESSION
     Dosage: 20 MILLIGRAM DAILY; 20 [MG/D ]
     Route: 064
  3. AMITRIPTYLIN [Suspect]
     Active Substance: AMITRIPTYLINE
     Indication: SLEEP DISORDER
     Dosage: 25 MILLIGRAM DAILY; 25 [MG/D ]
     Route: 064
  4. FOLIO (NEM) [Concomitant]
     Indication: PROPHYLAXIS OF NEURAL TUBE DEFECT
     Dosage: .4 MILLIGRAM DAILY; 0.4 [MG/D ]
     Route: 064
  5. AMOXICILLIN 750 HEUMANN [Concomitant]
     Active Substance: AMOXICILLIN SODIUM
     Indication: SINUSITIS
     Dosage: 2250 MILLIGRAM DAILY; 2250 [MG/D ]/ DURING 1ST AND 3RD TRIMESTER FOR 7 DAYS EACH
     Route: 064
  6. PARACETAMOL [Concomitant]
     Active Substance: ACETAMINOPHEN
     Indication: PYREXIA
     Dosage: 500 MILLIGRAM DAILY; 500 [MG/D ]/ DURING 1ST AND 3RD TRIMESTER FOR 7 DAYS EACH
     Route: 064

REACTIONS (2)
  - Cataract congenital [Not Recovered/Not Resolved]
  - Maternal drugs affecting foetus [None]
